FAERS Safety Report 11964528 (Version 3)
Quarter: 2016Q1

REPORT INFORMATION
  Report Type: Spontaneous
  Country: JP (occurrence: JP)
  Receive Date: 20160127
  Receipt Date: 20160315
  Transmission Date: 20160526
  Serious: Yes (Death)
  Sender: FDA-Public Use
  Company Number: JP-ROCHE-1698941

PATIENT
  Sex: Male
  Weight: 43 kg

DRUGS (11)
  1. LUCENTIS [Suspect]
     Active Substance: RANIBIZUMAB
     Indication: RETINAL VEIN OCCLUSION
     Route: 031
     Dates: start: 20141113
  2. BROTIZOLAM [Concomitant]
     Active Substance: BROTIZOLAM
     Route: 065
     Dates: start: 20141016
  3. ISCOTIN [Concomitant]
     Active Substance: ISONIAZID
     Route: 065
     Dates: start: 20150128
  4. SM POWDER [Concomitant]
     Route: 065
     Dates: start: 20140112
  5. SHAKUYAKUKANZOTO [Concomitant]
     Active Substance: HERBALS
     Route: 065
  6. COSOPT [Concomitant]
     Active Substance: DORZOLAMIDE HYDROCHLORIDE\TIMOLOL MALEATE
     Route: 065
     Dates: start: 20150113
  7. ALLOPURINOL. [Concomitant]
     Active Substance: ALLOPURINOL
     Route: 065
     Dates: start: 20141127
  8. METHYCOBAL [Concomitant]
     Active Substance: METHYLCOBALAMIN
     Route: 065
     Dates: start: 20141024
  9. TEPRENONE [Concomitant]
     Active Substance: TEPRENONE
     Route: 065
     Dates: start: 20141016
  10. PYDOXAL [Concomitant]
     Active Substance: PYRIDOXAL
     Route: 065
     Dates: start: 20150128
  11. RINDERON V [Concomitant]
     Active Substance: BETAMETHASONE VALERATE
     Route: 065
     Dates: start: 20150116

REACTIONS (1)
  - Polymyalgia rheumatica [Fatal]
